FAERS Safety Report 7738964-0 (Version None)
Quarter: 2011Q3

REPORT INFORMATION
  Report Type: 
  Country: None (occurrence: None)
  Receive Date: 20110909
  Receipt Date: 20110829
  Transmission Date: 20111222
  Serious: No
  Sender: FDA-Public Use
  Company Number: US-BIOGENIDEC-2011BI030343

PATIENT
  Sex: Female

DRUGS (1)
  1. TYSABRI [Suspect]
     Indication: MULTIPLE SCLEROSIS
     Route: 042
     Dates: start: 20110719

REACTIONS (5)
  - DECREASED APPETITE [None]
  - PARAESTHESIA [None]
  - FATIGUE [None]
  - OROPHARYNGEAL PAIN [None]
  - GAIT DISTURBANCE [None]
